FAERS Safety Report 7451281-1 (Version None)
Quarter: 2011Q2

REPORT INFORMATION
  Report Type: 
  Country: None (occurrence: None)
  Receive Date: 20110502
  Receipt Date: 20110419
  Transmission Date: 20111010
  Serious: Yes (Death)
  Sender: FDA-Public Use
  Company Number: AU-GILEAD-E2B_00001240

PATIENT
  Sex: Female
  Weight: 46.6 kg

DRUGS (10)
  1. SPIRONOLACTONE [Concomitant]
     Indication: PULMONARY ARTERIAL HYPERTENSION
     Dosage: 50MG PER DAY
     Route: 065
  2. ESOMEPRAZOLE [Concomitant]
     Indication: GASTROOESOPHAGEAL REFLUX DISEASE
     Dosage: 40MG PER DAY
     Route: 065
  3. SILDENAFIL CITRATE [Concomitant]
     Indication: PULMONARY ARTERIAL HYPERTENSION
     Dosage: 20MG PER DAY
     Route: 065
     Dates: start: 20090301
  4. PREDNISOLONE [Concomitant]
     Indication: SCLEROEDEMA
     Dosage: 5MG PER DAY
     Route: 065
  5. VALPROAT [Concomitant]
     Indication: EPILEPSY
     Route: 065
  6. SIMVASTATIN [Concomitant]
     Indication: SCLEROEDEMA
     Dosage: 20MG PER DAY
     Route: 065
  7. THYROXINE [Concomitant]
     Indication: HYPOTHYROIDISM
     Dosage: 50MG PER DAY
     Route: 065
  8. AMBRISENTAN [Suspect]
     Indication: PRODUCT USED FOR UNKNOWN INDICATION
     Route: 065
  9. FUROSEMIDE [Concomitant]
     Indication: PULMONARY ARTERIAL HYPERTENSION
     Dosage: 80MG PER DAY
     Route: 065
  10. GABAPENTIN [Concomitant]
     Dosage: 600MG TWICE PER DAY
     Route: 065

REACTIONS (1)
  - OESOPHAGEAL CARCINOMA [None]
